FAERS Safety Report 9537758 (Version 1)
Quarter: 2013Q3

REPORT INFORMATION
  Report Type: Spontaneous
  Country: FR (occurrence: FR)
  Receive Date: 20130919
  Receipt Date: 20130919
  Transmission Date: 20140515
  Serious: Yes (Other)
  Sender: FDA-Public Use
  Company Number: FR-ASTRAZENECA-2013SE69298

PATIENT
  Age: 55 Year
  Sex: Male

DRUGS (1)
  1. MERONEM [Suspect]
     Indication: PSEUDOMONAS INFECTION
     Dosage: UNKNOWN DOSE THREE TIMES A DAY
     Route: 042
     Dates: start: 20130904

REACTIONS (1)
  - Thrombosis in device [Unknown]
